FAERS Safety Report 12183871 (Version 2)
Quarter: 2016Q2

REPORT INFORMATION
  Report Type: Spontaneous
  Country: DE (occurrence: FI)
  Receive Date: 20160316
  Receipt Date: 20160504
  Transmission Date: 20160815
  Serious: No
  Sender: FDA-Public Use
  Company Number: FI-MERZ NORTH AMERICA, INC.-16MRZ-00187

PATIENT
  Age: 31 Year
  Sex: Female
  Weight: 59 kg

DRUGS (2)
  1. XEOMIN [Suspect]
     Active Substance: INCOBOTULINUMTOXINA
     Indication: SKIN COSMETIC PROCEDURE
     Dosage: 28 UNITS GLABELLAR FROWN LINES AND FOREHEAD
     Dates: start: 20160208, end: 20160208
  2. XEOMIN [Suspect]
     Active Substance: INCOBOTULINUMTOXINA
     Indication: SKIN WRINKLING

REACTIONS (4)
  - Ocular discomfort [None]
  - Visual impairment [None]
  - Eyelid ptosis [None]
  - Headache [None]

NARRATIVE: CASE EVENT DATE: 20160212
